FAERS Safety Report 9036265 (Version 1)
Quarter: 2013Q1

REPORT INFORMATION
  Report Type: Report from Study
  Country: US (occurrence: US)
  Receive Date: 20130129
  Receipt Date: 20130129
  Transmission Date: 20140127
  Serious: No
  Sender: FDA-Public Use
  Company Number: US-ABBOTT-12P-163-0892809-00

PATIENT
  Sex: Female

DRUGS (1)
  1. HUMIRA 40 MG/ 0.8 ML PRE-FILLED SYRINGE [Suspect]
     Indication: PSORIATIC ARTHROPATHY
     Route: 058
     Dates: start: 201112

REACTIONS (8)
  - Nausea [Unknown]
  - Vomiting [Unknown]
  - Palpitations [Unknown]
  - Rash [Unknown]
  - Dizziness [Unknown]
  - Influenza like illness [Unknown]
  - Muscular weakness [Unknown]
  - Cough [Unknown]
